FAERS Safety Report 9908553 (Version 1)
Quarter: 2014Q1

REPORT INFORMATION
  Report Type: Spontaneous
  Country: US (occurrence: None)
  Receive Date: 20140214
  Receipt Date: 20140214
  Transmission Date: 20141002
  Serious: Yes (Hospitalization)
  Sender: FDA-Public Use
  Company Number: None

PATIENT
  Age: 85 Year
  Sex: Female
  Weight: 81.3 kg

DRUGS (6)
  1. PROTAMINE [Suspect]
     Indication: AORTOGRAM
     Dosage: RECENT?10MG ONCE OVER 4-5 MINUTE IV
     Route: 042
  2. AMLODIPINE [Concomitant]
  3. DICLOFENAC [Concomitant]
  4. METFORMIN [Concomitant]
  5. NOVOLIN [Concomitant]
  6. PLAVIX [Concomitant]

REACTIONS (4)
  - Feeling hot [None]
  - Malaise [None]
  - Blood pressure systolic decreased [None]
  - Oxygen saturation decreased [None]
